FAERS Safety Report 18147512 (Version 1)
Quarter: 2020Q3

REPORT INFORMATION
  Report Type: Spontaneous
  Country: IT (occurrence: IT)
  Receive Date: 20200813
  Receipt Date: 20200813
  Transmission Date: 20201103
  Serious: Yes (Other)
  Sender: FDA-Public Use
  Company Number: IT-MYLANLABS-2020M1071042

PATIENT
  Age: 71 Year
  Sex: Male

DRUGS (1)
  1. TRIAMCINOLONE [Suspect]
     Active Substance: TRIAMCINOLONE
     Indication: OSTEOARTHRITIS
     Dosage: 1 MILLILITER HE WAS TREATED WITH INJECTION OF 1 ML OF TRIAMCINOLONE (40 MG/ML)
     Route: 014

REACTIONS (5)
  - Dermatitis allergic [Recovered/Resolved]
  - Symmetrical drug-related intertriginous and flexural exanthema [Recovered/Resolved]
  - Hypersensitivity [Recovered/Resolved]
  - Documented hypersensitivity to administered product [Recovered/Resolved]
  - Erythema multiforme [Recovered/Resolved]
